FAERS Safety Report 15689586 (Version 1)
Quarter: 2018Q4

REPORT INFORMATION
  Report Type: Other
  Country: US (occurrence: US)
  Receive Date: 20181205
  Receipt Date: 20181205
  Transmission Date: 20190205
  Serious: Yes (Hospitalization)
  Sender: FDA-Public Use
  Company Number: US-ORPHAN EUROPE-2059673

PATIENT
  Age: 24 Month
  Sex: Male

DRUGS (4)
  1. CYSTADANE [Suspect]
     Active Substance: BETAINE
  2. METHYLCOBALAMIN. [Concomitant]
     Active Substance: METHYLCOBALAMIN
     Route: 030
  3. HYDROXOCOBALAMIN [Concomitant]
     Active Substance: HYDROXOCOBALAMIN
     Route: 030
  4. FOLIC ACID. [Concomitant]
     Active Substance: FOLIC ACID
     Route: 050

REACTIONS (3)
  - Disease progression [Unknown]
  - Treatment noncompliance [Unknown]
  - Hyperhomocysteinaemia [Unknown]
